FAERS Safety Report 20040563 (Version 1)
Quarter: 2021Q4

REPORT INFORMATION
  Report Type: Spontaneous
  Country: US (occurrence: None)
  Receive Date: 20211107
  Receipt Date: 20211107
  Transmission Date: 20220304
  Serious: Yes (Life-Threatening, Hospitalization)
  Sender: FDA-Public Use
  Company Number: None

PATIENT
  Age: 51 Year
  Sex: Female

DRUGS (7)
  1. LISINOPRIL [Suspect]
     Active Substance: LISINOPRIL
     Indication: Hypertension
     Dosage: FREQUENCY : DAILY;?
     Route: 048
     Dates: start: 20160114, end: 20210805
  2. Metformin 1000mg PO BID [Concomitant]
  3. Ondansetron 4mg PO Q8H PRN [Concomitant]
  4. Levocetirizine 5mg PO QD [Concomitant]
  5. Glipizide 10mg PO BID [Concomitant]
  6. Furosemide 20mg PO QD [Concomitant]
  7. Dicyclomine 20mg PO TID PRN [Concomitant]

REACTIONS (1)
  - Angioedema [None]

NARRATIVE: CASE EVENT DATE: 20210805
